FAERS Safety Report 5538439-3 (Version None)
Quarter: 2007Q4

REPORT INFORMATION
  Report Type: 
  Country: None (occurrence: None)
  Receive Date: 20071205
  Receipt Date: 20071122
  Transmission Date: 20080405
  Serious: Yes (Death, Hospitalization)
  Sender: FDA-Public Use
  Company Number: CERZ-11915

PATIENT
  Age: 90 Month
  Sex: Male
  Weight: 14.5 kg

DRUGS (1)
  1. CEREZYME [Suspect]
     Indication: GAUCHER'S DISEASE
     Dosage: 60 U/KG Q2WKS IV
     Route: 042
     Dates: start: 20070814, end: 20070828

REACTIONS (6)
  - BACTERIAL INFECTION [None]
  - BLOOD CULTURE POSITIVE [None]
  - MULTI-ORGAN DISORDER [None]
  - PNEUMONIA [None]
  - RESPIRATORY DISTRESS [None]
  - SEPTIC SHOCK [None]
